FAERS Safety Report 14264625 (Version 1)
Quarter: 2017Q4

REPORT INFORMATION
  Report Type: Spontaneous
  Country: US (occurrence: US)
  Receive Date: 20171208
  Receipt Date: 20171208
  Transmission Date: 20180321
  Serious: Yes (Hospitalization, Other)
  Sender: FDA-Public Use
  Company Number: US-PFIZER INC-2017498181

PATIENT

DRUGS (3)
  1. BETAMETHASONE ACETATE [Suspect]
     Active Substance: BETAMETHASONE ACETATE
     Dosage: UNK
  2. CORTISONE ACETATE. [Suspect]
     Active Substance: CORTISONE ACETATE
     Dosage: UNK
  3. LIDOCAINE HCL [Suspect]
     Active Substance: LIDOCAINE HYDROCHLORIDE
     Dosage: UNK

REACTIONS (2)
  - Mycobacterium chelonae infection [Unknown]
  - Bacterial infection [Unknown]
